FAERS Safety Report 23867644 (Version 1)
Quarter: 2024Q2

REPORT INFORMATION
  Report Type: Spontaneous
  Country: FR (occurrence: FR)
  Receive Date: 20240517
  Receipt Date: 20240517
  Transmission Date: 20240716
  Serious: Yes (Hospitalization)
  Sender: FDA-Public Use
  Company Number: None

PATIENT
  Age: 54 Year
  Sex: Female
  Weight: 50 kg

DRUGS (4)
  1. QUETIAPINE [Suspect]
     Active Substance: QUETIAPINE
     Indication: Mental disorder
     Route: 048
     Dates: start: 202211, end: 202309
  2. HALOPERIDOL [Suspect]
     Active Substance: HALOPERIDOL
     Indication: Mental disorder
     Route: 048
     Dates: start: 202211, end: 202312
  3. DULOXETINE [Suspect]
     Active Substance: DULOXETINE
     Indication: Mental disorder
     Dosage: 60 MG/DAY, DULOXETINE HYDROCHLORIDE
     Route: 048
     Dates: start: 2022
  4. LYRICA [Suspect]
     Active Substance: PREGABALIN
     Indication: Mental disorder
     Route: 048
     Dates: start: 202211

REACTIONS (1)
  - Tardive dyskinesia [Not Recovered/Not Resolved]

NARRATIVE: CASE EVENT DATE: 20240301
